FAERS Safety Report 5830358-8 (Version None)
Quarter: 2008Q3

REPORT INFORMATION
  Report Type: 
  Country: None (occurrence: None)
  Receive Date: 20080801
  Receipt Date: 20080723
  Transmission Date: 20090109
  Serious: Yes (Death)
  Sender: FDA-Public Use
  Company Number: JP-ROCHE-577906

PATIENT
  Sex: Male

DRUGS (4)
  1. KYTRIL [Suspect]
     Indication: PROPHYLAXIS OF NAUSEA AND VOMITING
     Route: 041
  2. ONCOVIN [Suspect]
     Dosage: ROUTE: INJECTABLE (NOT OTHERWISE SPECIFIED)
     Route: 050
  3. ENDOXAN [Suspect]
     Route: 065
  4. DAUNOMYCIN [Suspect]
     Route: 041

REACTIONS (1)
  - SHOCK [None]
